FAERS Safety Report 5341922-7 (Version None)
Quarter: 2007Q2

REPORT INFORMATION
  Report Type: 
  Country: None (occurrence: None)
  Receive Date: 20070409
  Receipt Date: 20060210
  Transmission Date: 20071010
  Serious: Yes (Other)
  Sender: FDA-Public Use
  Company Number: DSA_27803_2006

PATIENT
  Age: 88 Year
  Sex: Female
  Weight: 48.5349 kg

DRUGS (17)
  1. CARDIZEM LA [Suspect]
     Indication: HYPERTENSION
     Dosage: 360 MG Q DAY
     Dates: start: 20060128, end: 20060201
  2. LOTREL /01289101/ [Concomitant]
  3. HYDROCHLOROTHIAZIDE [Concomitant]
  4. CALCIUM SUPPLEMENT PLUS VITAMIN D [Concomitant]
  5. ADVAIR DISKUS 100/50 [Concomitant]
  6. ALBUTEROL [Concomitant]
  7. SYNTHROID [Concomitant]
  8. LOPRESSOR [Concomitant]
  9. VITAMIN CAP [Concomitant]
  10. ASCORBIC ACID [Concomitant]
  11. CHROMAGEN /00555001/ [Concomitant]
  12. ACTONEL [Concomitant]
  13. GLUCOSAMINE [Concomitant]
  14. IMODIUM /00384302/ [Concomitant]
  15. ASPIRIN [Concomitant]
  16. GARLIC [Concomitant]
  17. TYLENOL EXTRA-STRENGTH [Concomitant]

REACTIONS (3)
  - EXFOLIATIVE RASH [None]
  - HYPERSENSITIVITY [None]
  - OEDEMA PERIPHERAL [None]
